FAERS Safety Report 5300164-1 (Version None)
Quarter: 2007Q2

REPORT INFORMATION
  Report Type: 
  Country: None (occurrence: None)
  Receive Date: 20070418
  Receipt Date: 20070410
  Transmission Date: 20071010
  Serious: Yes (Other)
  Sender: FDA-Public Use
  Company Number: HQWYE108110APR07

PATIENT
  Sex: Female

DRUGS (15)
  1. CORDARONE [Suspect]
     Indication: ARRHYTHMIA
     Route: 048
     Dates: end: 20061001
  2. ACETYLSALICYLIC ACID SRT [Concomitant]
     Route: 048
  3. ATORVASTATIN CALCIUM [Concomitant]
     Dosage: 40 MG (FREQUENCY UNSPECIFIED)
     Route: 048
  4. BISOPRODOL FUMARATE [Concomitant]
     Dosage: 2.5 MG (FREQUENCY UNSPECIFIED)
     Route: 048
  5. CANDESARTAN [Concomitant]
     Route: 048
  6. CYCLIZINE [Concomitant]
     Dosage: 50 MG (FREQUENCY UNSPECIFIED)
     Route: 048
  7. FUROSEMIDE [Concomitant]
  8. GTN-S [Concomitant]
     Dosage: UNSPECIFIED
     Route: 048
  9. ISOSORBIDE MONONITRATE [Concomitant]
     Dosage: 25 MG (FREQUENCY UNSPECIFIED)
     Route: 048
  10. LEVOTHYROXINE SODIUM [Concomitant]
     Dosage: 50 MCG (FREQUENCY UNSPECIFIED)
     Route: 048
  11. NICORANDIL [Concomitant]
     Route: 048
  12. OMEPRAZOLE [Concomitant]
     Dosage: 20 MG (FREQUENCY UNSPECIFIED)
  13. TEMAZEPAM [Concomitant]
  14. MORPHINE SULFATE [Concomitant]
  15. DIGOXIN [Suspect]

REACTIONS (1)
  - RETINOPATHY [None]
